FAERS Safety Report 8850700 (Version 2)
Quarter: 2012Q4

REPORT INFORMATION
  Report Type: 
  Country: US (occurrence: US)
  Receive Date: 20121019
  Receipt Date: 20121104
  Transmission Date: 20130627
  Serious: Yes (Other)
  Sender: FDA-Public Use
  Company Number: US-JNJFOC-20121008256

PATIENT
  Age: 58 None
  Sex: Male
  Weight: 102.06 kg

DRUGS (11)
  1. SANDOZ FENTANYL TRANSDERMAL SYSTEM [Suspect]
     Indication: PAIN IN EXTREMITY
     Route: 062
     Dates: start: 2012
  2. SANDOZ FENTANYL TRANSDERMAL SYSTEM [Suspect]
     Indication: PAIN IN EXTREMITY
     Route: 062
     Dates: start: 2012
  3. SANDOZ FENTANYL TRANSDERMAL SYSTEM [Suspect]
     Indication: BACK PAIN
     Route: 062
     Dates: start: 2012
  4. PREVACID [Concomitant]
     Indication: GASTRIC DISORDER
     Dosage: once daily
     Route: 048
  5. GABAPENTIN [Concomitant]
     Indication: BACK DISORDER
     Dosage: 100 mg 2 tablets 6 times daily
     Route: 048
     Dates: start: 2009
  6. ATENOLOL/CHLORTHALIDONE [Concomitant]
     Indication: HYPERTENSION
     Dosage: once daily
     Route: 048
  7. LUNESTA [Concomitant]
     Indication: SLEEP DISORDER
     Dosage: once daily
     Route: 048
  8. HYDROCODONE [Concomitant]
     Indication: BREAKTHROUGH PAIN
     Dosage: 10/500 mg tablet as needed
     Route: 048
     Dates: start: 2009
  9. FLUOXETINE [Concomitant]
     Indication: DEPRESSION
     Route: 048
  10. MELOXICAM [Concomitant]
     Indication: ANTIINFLAMMATORY THERAPY
     Dosage: once daily
     Route: 048
  11. ASPIRIN [Concomitant]
     Indication: CARDIAC DISORDER
     Dosage: once daily
     Route: 048

REACTIONS (3)
  - Carpal tunnel syndrome [Recovered/Resolved]
  - Drug ineffective [Not Recovered/Not Resolved]
  - Withdrawal syndrome [Not Recovered/Not Resolved]
